FAERS Safety Report 8887300 (Version 1)
Quarter: 2012Q4

REPORT INFORMATION
  Report Type: Spontaneous
  Country: US (occurrence: None)
  Receive Date: 20121105
  Receipt Date: 20121105
  Transmission Date: 20130627
  Serious: Yes (Life-Threatening, Hospitalization, Disabling, Other)
  Sender: FDA-Public Use
  Company Number: None

PATIENT
  Age: 51 Year
  Sex: Male
  Weight: 73.94 kg

DRUGS (2)
  1. TORADOL [Suspect]
     Indication: PAIN
     Dosage: EQUAL OR GREATER THAN 5 TIMES  IV DRIP
     Route: 041
     Dates: start: 20120605, end: 20120726
  2. POTASSIUM CHLORIDE [Suspect]
     Indication: FLUID REPLACEMENT
     Route: 041
     Dates: start: 20120605, end: 20120726

REACTIONS (4)
  - Pneumonia fungal [None]
  - Bronchopulmonary aspergillosis [None]
  - Meningitis fungal [None]
  - Blindness transient [None]
